FAERS Safety Report 5520596-6 (Version None)
Quarter: 2007Q4

REPORT INFORMATION
  Report Type: 
  Country: None (occurrence: None)
  Receive Date: 20071119
  Receipt Date: 20071108
  Transmission Date: 20080405
  Serious: Yes (Hospitalization)
  Sender: FDA-Public Use
  Company Number: GB-AMGEN-UK252059

PATIENT
  Sex: Female
  Weight: 77 kg

DRUGS (4)
  1. NEULASTA [Suspect]
     Indication: CHEMOTHERAPY
     Route: 058
     Dates: start: 20070612
  2. ERYTHROMYCIN [Suspect]
     Route: 065
  3. EPIRUBICIN [Concomitant]
     Route: 065
     Dates: start: 20070612
  4. XELODA [Concomitant]
     Route: 065
     Dates: start: 20070612

REACTIONS (3)
  - DEHYDRATION [None]
  - DIARRHOEA [None]
  - VOMITING [None]
